FAERS Safety Report 14871740 (Version 5)
Quarter: 2025Q4

REPORT INFORMATION
  Report Type: Spontaneous
  Country: EU (occurrence: EU)
  Receive Date: 20180509
  Receipt Date: 20251113
  Transmission Date: 20260117
  Serious: Yes (Life-Threatening, Other)
  Sender: NOVO NORDISK
  Company Number: EU-AFSSAPS-BS20180325

PATIENT
  Age: 68 Year
  Sex: Male
  Weight: 112 kg

DRUGS (20)
  1. OLANZAPINE [Suspect]
     Active Substance: OLANZAPINE
     Indication: Product used for unknown indication
     Dosage: 5 MG
     Route: 048
     Dates: start: 2012
  2. REPAGLINIDE [Concomitant]
     Active Substance: REPAGLINIDE
     Indication: Diabetes mellitus
     Dosage: 2 DF, QD
     Route: 048
     Dates: end: 20180420
  3. HYDROCHLOROTHIAZIDE [Suspect]
     Active Substance: HYDROCHLOROTHIAZIDE
     Indication: Hypertension
     Dosage: 25 MG
     Route: 048
     Dates: end: 20180420
  4. VICTOZA [Suspect]
     Active Substance: LIRAGLUTIDE
     Indication: Diabetes mellitus
     Dosage: 0.6 MG
     Route: 058
     Dates: end: 20180420
  5. VENLAFAXINE [Suspect]
     Active Substance: VENLAFAXINE HYDROCHLORIDE
     Indication: Narcolepsy
     Dosage: 300 MG
     Route: 048
     Dates: start: 2012, end: 20180419
  6. IRBESARTAN [Suspect]
     Active Substance: IRBESARTAN
     Indication: Hypertension
     Dosage: 300 MG
     Route: 048
     Dates: end: 20180420
  7. ROSUVASTATIN [Suspect]
     Active Substance: ROSUVASTATIN
     Indication: Hypercholesterolaemia
     Dosage: 5 MG
     Route: 048
     Dates: end: 20180420
  8. LANTUS [Suspect]
     Active Substance: INSULIN GLARGINE
     Indication: Diabetes mellitus
     Dosage: 52 IU
     Route: 058
     Dates: end: 20180420
  9. POTASSIUM CHLORIDE [Suspect]
     Active Substance: POTASSIUM CHLORIDE
     Indication: Product used for unknown indication
     Dosage: 1 G
     Route: 042
     Dates: end: 20180420
  10. METFORMIN HYDROCHLORIDE [Suspect]
     Active Substance: METFORMIN HYDROCHLORIDE
     Indication: Diabetes mellitus
     Dosage: 3.00 G
     Route: 048
     Dates: end: 20180420
  11. GLUCOPHAGE [Concomitant]
     Active Substance: METFORMIN HYDROCHLORIDE
     Indication: Diabetes mellitus
     Dosage: 1 DF, QD
     Route: 065
  12. EFFEXOR [Suspect]
     Active Substance: VENLAFAXINE HYDROCHLORIDE
     Indication: Narcolepsy
     Dosage: 75 MG, QD
     Dates: start: 2012
  13. INSULIN NOS [Concomitant]
     Active Substance: INSULIN NOS
     Indication: Product used for unknown indication
     Dosage: UNK
     Route: 065
  14. POTASSIUM CHLORIDE [Suspect]
     Active Substance: POTASSIUM CHLORIDE
     Indication: Product used for unknown indication
     Dosage: 1 DF, QD
  15. REPAGLINIDE [Suspect]
     Active Substance: REPAGLINIDE
     Indication: Diabetes mellitus
     Dosage: 2 DF QD
     Route: 048
     Dates: end: 20180420
  16. ZYPREXA [Suspect]
     Active Substance: OLANZAPINE
     Indication: Sleep disorder
     Dosage: 5 MG, QD
  17. LIRAGLUTIDE [Concomitant]
     Active Substance: LIRAGLUTIDE
     Indication: Diabetes mellitus
     Dosage: 10 IU
     Route: 065
  18. DEXTROAMPHETAMINE SULFATE [Suspect]
     Active Substance: DEXTROAMPHETAMINE SULFATE
     Indication: Narcolepsy
     Dosage: 5 MG, QD
     Route: 048
     Dates: start: 20171121, end: 20171220
  19. DEXTROAMPHETAMINE SULFATE [Suspect]
     Active Substance: DEXTROAMPHETAMINE SULFATE
     Dosage: 5 MG, QD
     Route: 048
     Dates: start: 20171221
  20. POTASSIUM CHLORIDE [Suspect]
     Active Substance: POTASSIUM CHLORIDE
     Indication: Product used for unknown indication
     Dosage: 1G
     Route: 042
     Dates: start: 20180420

REACTIONS (8)
  - Cardio-respiratory arrest [Recovering/Resolving]
  - Ventricular fibrillation [Recovering/Resolving]
  - Chest pain [Recovered/Resolved]
  - Discomfort [Recovered/Resolved]
  - Supraventricular extrasystoles [Recovering/Resolving]
  - Extrasystoles [Recovering/Resolving]
  - Dyspnoea [Recovered/Resolved]
  - Atrial fibrillation [Recovering/Resolving]

NARRATIVE: CASE EVENT DATE: 20180103
